FAERS Safety Report 15777904 (Version 1)
Quarter: 2018Q4

REPORT INFORMATION
  Report Type: Spontaneous
  Country: US (occurrence: US)
  Receive Date: 20181231
  Receipt Date: 20181231
  Transmission Date: 20190205
  Serious: Yes (Disabling)
  Sender: FDA-Public Use
  Company Number: None

PATIENT
  Age: 60 Year
  Sex: Female
  Weight: 101.25 kg

DRUGS (14)
  1. BUSPERONE [Concomitant]
  2. IBUPROFEN. [Concomitant]
     Active Substance: IBUPROFEN
  3. RANITIDINE. [Concomitant]
     Active Substance: RANITIDINE
  4. EQUATE ALLERGY RELIEF [Concomitant]
  5. DICYCLOMINE [Concomitant]
     Active Substance: DICYCLOMINE HYDROCHLORIDE
  6. EQUATE DAILY VITAMIN GUMMY [Concomitant]
  7. VITAMIN D3 [Concomitant]
     Active Substance: CHOLECALCIFEROL
  8. WELLBUTRIN [Concomitant]
     Active Substance: BUPROPION HYDROCHLORIDE
  9. ROBAXIN [Suspect]
     Active Substance: METHOCARBAMOL
     Indication: PAIN
     Dosage: ?          QUANTITY:1.5 TABLET(S);?
     Route: 048
     Dates: start: 20181213, end: 20181217
  10. ROBAXIN [Suspect]
     Active Substance: METHOCARBAMOL
     Indication: MUSCLE SPASMS
     Dosage: ?          QUANTITY:1.5 TABLET(S);?
     Route: 048
     Dates: start: 20181213, end: 20181217
  11. SINGULAIR [Concomitant]
     Active Substance: MONTELUKAST SODIUM
  12. GENERIC FLONASE [Concomitant]
  13. QVAR [Concomitant]
     Active Substance: BECLOMETHASONE DIPROPIONATE
  14. ALBUTEROL. [Concomitant]
     Active Substance: ALBUTEROL

REACTIONS (12)
  - Abdominal pain upper [None]
  - Pain [None]
  - Product substitution issue [None]
  - Treatment failure [None]
  - Arthralgia [None]
  - Muscular weakness [None]
  - Fatigue [None]
  - Malaise [None]
  - Nausea [None]
  - Influenza like illness [None]
  - Headache [None]
  - Back pain [None]

NARRATIVE: CASE EVENT DATE: 20181217
